FAERS Safety Report 5084507-2 (Version None)
Quarter: 2006Q3

REPORT INFORMATION
  Report Type: 
  Country: None (occurrence: None)
  Receive Date: 20060821
  Receipt Date: 20060510
  Transmission Date: 20061208
  Serious: Yes (Other)
  Sender: FDA-Public Use
  Company Number: 2006UW09314

PATIENT
  Age: 29388 Day
  Sex: Female
  Weight: 62.7 kg

DRUGS (14)
  1. SEROQUEL [Suspect]
     Indication: AGITATION
     Route: 048
     Dates: start: 20060401
  2. SEROQUEL [Suspect]
     Indication: PSYCHOTIC DISORDER
     Route: 048
     Dates: start: 20060401
  3. SEROQUEL [Suspect]
     Indication: MANIA
     Route: 048
     Dates: start: 20060401
  4. SEROQUEL [Suspect]
     Dosage: INCREASED; 100 MG AM 50 MG HS
     Route: 048
  5. SEROQUEL [Suspect]
     Dosage: INCREASED; 100 MG AM 50 MG HS
     Route: 048
  6. SEROQUEL [Suspect]
     Dosage: INCREASED; 100 MG AM 50 MG HS
     Route: 048
  7. SEROQUEL [Suspect]
     Dosage: REDUCED
     Route: 048
  8. SEROQUEL [Suspect]
     Dosage: REDUCED
     Route: 048
  9. SEROQUEL [Suspect]
     Dosage: REDUCED
     Route: 048
  10. EXELON [Concomitant]
     Indication: DEMENTIA ALZHEIMER'S TYPE
     Route: 048
  11. NAMENDA [Concomitant]
     Indication: DEMENTIA ALZHEIMER'S TYPE
     Route: 048
  12. NORVASC [Concomitant]
     Indication: HYPERTENSION
     Route: 048
  13. MAXZIDE [Concomitant]
     Indication: HYPERTENSION
     Route: 048
  14. VYTORIN [Concomitant]
     Indication: HYPERCHOLESTEROLAEMIA
     Route: 048

REACTIONS (2)
  - ORTHOSTATIC HYPOTENSION [None]
  - SYNCOPE [None]
